FAERS Safety Report 19445661 (Version 5)
Quarter: 2021Q3

REPORT INFORMATION
  Report Type: Spontaneous
  Country: US (occurrence: US)
  Receive Date: 20210622
  Receipt Date: 20210812
  Transmission Date: 20211014
  Serious: Yes (Other)
  Sender: FDA-Public Use
  Company Number: US-GLAXOSMITHKLINE-US2021131233

PATIENT
  Sex: Female

DRUGS (2)
  1. ZEJULA [Suspect]
     Active Substance: NIRAPARIB
     Indication: RETROPERITONEAL CANCER
     Dosage: 300 MG, QD
     Route: 048
     Dates: start: 20210606
  2. ZEJULA [Suspect]
     Active Substance: NIRAPARIB
     Indication: MALIGNANT PERITONEAL NEOPLASM
     Dosage: 300 MG, QD
     Route: 048

REACTIONS (9)
  - Inflammation [Unknown]
  - Nausea [Recovering/Resolving]
  - Impaired healing [Unknown]
  - Insomnia [Recovering/Resolving]
  - Carbohydrate antigen 125 increased [Unknown]
  - Anxiety [Unknown]
  - Device related infection [Unknown]
  - Pruritus [Unknown]
  - Photosensitivity reaction [Unknown]
